FAERS Safety Report 19224958 (Version 1)
Quarter: 2021Q2

REPORT INFORMATION
  Report Type: Spontaneous
  Country: US (occurrence: US)
  Receive Date: 20210505
  Receipt Date: 20210505
  Transmission Date: 20210717
  Serious: No
  Sender: FDA-Public Use
  Company Number: US-ROCHE-2686328

PATIENT
  Sex: Female
  Weight: 106.69 kg

DRUGS (1)
  1. ESBRIET [Suspect]
     Active Substance: PIRFENIDONE
     Indication: IDIOPATHIC PULMONARY FIBROSIS
     Dosage: 267 MG THREE TIMES A DAY
     Route: 048
     Dates: start: 2019

REACTIONS (4)
  - Oxygen saturation decreased [Unknown]
  - Off label use [Unknown]
  - Sleep disorder [Unknown]
  - Intentional product use issue [Unknown]
